FAERS Safety Report 8215888-6 (Version None)
Quarter: 2012Q1

REPORT INFORMATION
  Report Type: 
  Country: None (occurrence: None)
  Receive Date: 20120316
  Receipt Date: 20120308
  Transmission Date: 20120608
  Serious: Yes (Other)
  Sender: FDA-Public Use
  Company Number: JP-ROXANE LABORATORIES, INC.-2012-RO-00819RO

PATIENT
  Age: 78 Year
  Sex: Female

DRUGS (2)
  1. FLUTICASONE FUROATE [Suspect]
     Indication: ASTHMA
     Dosage: 1000 MCG
     Route: 055
  2. PREDNISOLONE [Suspect]
     Indication: ASTHMA
     Route: 048

REACTIONS (1)
  - MYCOBACTERIUM KANSASII INFECTION [None]
